FAERS Safety Report 7299690-8 (Version None)
Quarter: 2011Q1

REPORT INFORMATION
  Report Type: 
  Country: None (occurrence: None)
  Receive Date: 20110208
  Receipt Date: 20110125
  Transmission Date: 20110831
  Serious: Yes (Hospitalization, Other)
  Sender: FDA-Public Use
  Company Number: GER/UKI/11/0017252

PATIENT
  Age: 60 Year
  Sex: Female

DRUGS (13)
  1. LYRICA [Suspect]
     Indication: GENERALISED ANXIETY DISORDER
     Dosage: 50 MG, 3 IN 1 D,; 75 MG, 3 IN 1 D; 100 MG, 3 IN 1 D; 200 MG,
     Dates: start: 20100701, end: 20100801
  2. LYRICA [Suspect]
     Indication: GENERALISED ANXIETY DISORDER
     Dosage: 50 MG, 3 IN 1 D,; 75 MG, 3 IN 1 D; 100 MG, 3 IN 1 D; 200 MG,
     Dates: start: 20100501
  3. LYRICA [Suspect]
     Indication: GENERALISED ANXIETY DISORDER
     Dosage: 50 MG, 3 IN 1 D,; 75 MG, 3 IN 1 D; 100 MG, 3 IN 1 D; 200 MG,
     Dates: end: 20100913
  4. SERTRALINE (SERTRALINE) [Suspect]
     Indication: PRODUCT USED FOR UNKNOWN INDICATION
     Dosage: 100 MG,; 100 MG, 1 IN 1 D; 150 MG
  5. CITALOPRAM (CITALOPRAM) [Suspect]
     Indication: PRODUCT USED FOR UNKNOWN INDICATION
  6. DOSULEPIN (DOSULEPIN) [Suspect]
     Indication: DEPRESSION
     Dosage: 50 MG, 1 IN 1 D,
  7. ASPIRIN [Suspect]
     Indication: PRODUCT USED FOR UNKNOWN INDICATION
     Dosage: 75 MG, 1 IN 1 D,
  8. ATENOLOL [Suspect]
     Indication: PRODUCT USED FOR UNKNOWN INDICATION
     Dosage: 25 MG, 1 IN 1 D,
  9. PROMETHAZINE [Suspect]
     Indication: ANXIETY
     Dosage: 50 MG,
  10. PROMETHAZINE [Suspect]
     Indication: SLEEP DISORDER
     Dosage: 50 MG,
  11. SIMVASTATIN [Suspect]
     Indication: PRODUCT USED FOR UNKNOWN INDICATION
     Dosage: 20 MG, 1 IN 1 D,
  12. ZOPICLONE (ZOPICLONE) [Suspect]
     Indication: SLEEP DISORDER
     Dosage: 3.75 MG, 1 IN 1 D,
  13. DIAZEPAM [Suspect]
     Indication: PRODUCT USED FOR UNKNOWN INDICATION

REACTIONS (37)
  - ANAEMIA [None]
  - DEPRESSION [None]
  - INSOMNIA [None]
  - CACHEXIA [None]
  - VOMITING [None]
  - ACCIDENTAL OVERDOSE [None]
  - CONFUSIONAL STATE [None]
  - DIARRHOEA [None]
  - FEELING JITTERY [None]
  - ADJUSTMENT DISORDER [None]
  - FATIGUE [None]
  - ORAL DISCOMFORT [None]
  - OVERDOSE [None]
  - DEPRESSED LEVEL OF CONSCIOUSNESS [None]
  - ANXIETY [None]
  - HYPOCHONDRIASIS [None]
  - PAIN [None]
  - WEIGHT DECREASED [None]
  - DECREASED APPETITE [None]
  - TENSION [None]
  - DIZZINESS [None]
  - NAUSEA [None]
  - TREMOR [None]
  - URINARY TRACT INFECTION [None]
  - SYNCOPE [None]
  - HYPERHIDROSIS [None]
  - DELUSION [None]
  - MIDDLE INSOMNIA [None]
  - AGGRESSION [None]
  - MALAISE [None]
  - MACROCYTOSIS [None]
  - FALL [None]
  - LETHARGY [None]
  - MYALGIA [None]
  - MUSCLE TWITCHING [None]
  - PANIC ATTACK [None]
  - SUICIDAL IDEATION [None]
